FAERS Safety Report 9108336 (Version 1)
Quarter: 2013Q1

REPORT INFORMATION
  Report Type: Spontaneous
  Country: SI (occurrence: SI)
  Receive Date: 20130222
  Receipt Date: 20130222
  Transmission Date: 20140127
  Serious: Yes (Hospitalization)
  Sender: FDA-Public Use
  Company Number: PHHY2013SI003882

PATIENT
  Age: 59 Year
  Sex: Female

DRUGS (10)
  1. VINCRISTINE [Suspect]
     Indication: ACUTE LYMPHOCYTIC LEUKAEMIA RECURRENT
     Dosage: 2 MG, UNK
     Route: 042
  2. DEXAMETHASONE [Suspect]
     Indication: ACUTE LYMPHOCYTIC LEUKAEMIA RECURRENT
     Dosage: 20 MG, UNK
     Route: 042
  3. METHOTREXATE [Suspect]
     Indication: ACUTE LYMPHOCYTIC LEUKAEMIA RECURRENT
     Route: 037
  4. DAUNORUBICIN [Suspect]
     Indication: ACUTE LYMPHOCYTIC LEUKAEMIA RECURRENT
     Dosage: 110 MG, UNK
     Route: 042
  5. ASPARAGINASE [Suspect]
     Indication: ACUTE LYMPHOCYTIC LEUKAEMIA RECURRENT
     Dosage: 3.7 MG, UNK
  6. CASPOFUNGIN [Concomitant]
     Dosage: 70 MG, UNK
  7. CASPOFUNGIN [Concomitant]
     Dosage: 50 MG, UNK
  8. LEVOFLOXACIN [Concomitant]
     Indication: ABDOMINAL DISCOMFORT
     Dosage: 500 MG, UNK
  9. PANTOPRAZOLE [Concomitant]
     Route: 048
  10. GLUCOCORTICOIDS [Concomitant]

REACTIONS (4)
  - Bone marrow failure [Unknown]
  - Neutropenia [Unknown]
  - Leukopenia [Unknown]
  - Mouth ulceration [Unknown]
